FAERS Safety Report 6701602-X (Version None)
Quarter: 2010Q2

REPORT INFORMATION
  Report Type: 
  Country: None (occurrence: None)
  Receive Date: 20100429
  Receipt Date: 20100416
  Transmission Date: 20101027
  Serious: Yes (Other)
  Sender: FDA-Public Use
  Company Number: GR-ELI_LILLY_AND_COMPANY-GR201004004743

PATIENT
  Age: 73 Year
  Sex: Female

DRUGS (5)
  1. BYETTA [Suspect]
     Indication: DIABETES MELLITUS
     Dosage: 5 UG, 2/D
     Route: 058
  2. BYETTA [Suspect]
     Dosage: 10 UG, 2/D
     Route: 058
     Dates: end: 20100415
  3. SINTROM [Concomitant]
     Indication: ATRIAL FIBRILLATION
     Dosage: UNK UNK, DAILY (1/D)
     Route: 048
  4. DIGOXIN [Concomitant]
     Indication: ATRIAL FIBRILLATION
     Route: 048
  5. SOLOSA [Concomitant]
     Indication: DIABETES MELLITUS
     Dosage: UNK UNK, DAILY (1/D)
     Route: 048

REACTIONS (2)
  - HAEMATOMA [None]
  - PRURITUS [None]
